FAERS Safety Report 6371415-X (Version None)
Quarter: 2009Q3

REPORT INFORMATION
  Report Type: 
  Country: None (occurrence: None)
  Receive Date: 20090923
  Receipt Date: 20071004
  Transmission Date: 20100115
  Serious: No
  Sender: FDA-Public Use
  Company Number: US-ASTRAZENECA-2007UW08825

PATIENT
  Age: 18109 Day
  Sex: Female
  Weight: 79.8 kg

DRUGS (24)
  1. SEROQUEL [Suspect]
     Indication: SLEEP DISORDER
     Route: 048
     Dates: start: 20011115, end: 20061017
  2. SEROQUEL [Suspect]
     Indication: ANXIETY
     Route: 048
     Dates: start: 20011115, end: 20061017
  3. SEROQUEL [Suspect]
     Indication: DEPRESSION
     Route: 048
     Dates: start: 20011115, end: 20061017
  4. SEROQUEL [Suspect]
     Dosage: 25 MG - 100 MG
     Route: 048
  5. SEROQUEL [Suspect]
     Dosage: 25 MG - 100 MG
     Route: 048
  6. SEROQUEL [Suspect]
     Dosage: 25 MG - 100 MG
     Route: 048
  7. SYNTHROID [Concomitant]
     Route: 065
  8. ZOCOR [Concomitant]
     Route: 048
  9. AMITRIPTYLINE HYDROCHLORIDE [Concomitant]
     Dosage: 10-30 MG AT NIGHT.
     Route: 065
  10. PAXIL [Concomitant]
     Route: 065
  11. TRAZODONE [Concomitant]
     Route: 065
  12. ULTRAM [Concomitant]
     Route: 065
  13. NAPROXEN [Concomitant]
     Route: 065
  14. GLUCOTROL [Concomitant]
     Route: 065
  15. METFORMIN HCL [Concomitant]
     Route: 065
  16. ZOLOFT [Concomitant]
     Route: 065
  17. WELLBUTRIN [Concomitant]
     Route: 048
  18. BYETTA [Concomitant]
     Route: 065
  19. ASPIRIN [Concomitant]
     Route: 048
  20. LIPITOR [Concomitant]
     Route: 065
  21. LESCOL [Concomitant]
     Route: 048
  22. LISINOPRIL [Concomitant]
     Dosage: 2.5-5 MG EVERY DAY
     Route: 048
  23. CELEXA [Concomitant]
     Dosage: 20-125 EVERY DAY
     Route: 065
  24. ACTOS [Concomitant]
     Dosage: 15-45 MG EVERY DAY
     Route: 048

REACTIONS (32)
  - ABDOMINAL PAIN [None]
  - BACK PAIN [None]
  - BLOOD GLUCOSE INCREASED [None]
  - BRONCHITIS [None]
  - CHEST DISCOMFORT [None]
  - DIABETES MELLITUS [None]
  - DIVERTICULUM [None]
  - DYSPHAGIA [None]
  - FATIGUE [None]
  - GASTROOESOPHAGEAL REFLUX DISEASE [None]
  - HAEMORRHOIDS [None]
  - HEADACHE [None]
  - HYPERHIDROSIS [None]
  - HYPOGLYCAEMIA [None]
  - JOINT STIFFNESS [None]
  - MENSTRUATION IRREGULAR [None]
  - MUSCULOSKELETAL PAIN [None]
  - NAUSEA [None]
  - NECK PAIN [None]
  - NOCTURIA [None]
  - OEDEMA PERIPHERAL [None]
  - PAIN IN EXTREMITY [None]
  - PALPITATIONS [None]
  - PARAESTHESIA [None]
  - PELVIC PAIN [None]
  - PHARYNGITIS STREPTOCOCCAL [None]
  - POLLAKIURIA [None]
  - POLYURIA [None]
  - SWELLING FACE [None]
  - TRIGGER FINGER [None]
  - VAGINAL HAEMORRHAGE [None]
  - VAGINAL INFECTION [None]
